FAERS Safety Report 7080292-3 (Version None)
Quarter: 2010Q4

REPORT INFORMATION
  Report Type: 
  Country: None (occurrence: None)
  Receive Date: 20101022
  Receipt Date: 20101007
  Transmission Date: 20110411
  Serious: Yes (Hospitalization, Other)
  Sender: FDA-Public Use
  Company Number: DSJ-2010-18407

PATIENT
  Age: 67 Year
  Sex: Female

DRUGS (7)
  1. BENICAR [Suspect]
     Indication: HYPERTENSION
     Dosage: 40 MG (40 MG,1 IN 1 D),PER ORAL
     Route: 048
     Dates: start: 20100801
  2. METOPROLOL SUCCINATE [Concomitant]
  3. INDAPAMIDE (INDAPAMIDE) (INDAPAMIDE) [Concomitant]
  4. PRAVASTATIN [Concomitant]
  5. AMITRIPTYLINE (AMITRIPTYLINE) (AMITRIPTYLINE) [Concomitant]
  6. CLONIDINE [Concomitant]
  7. ASPIRIN [Concomitant]

REACTIONS (4)
  - BLOOD PRESSURE INCREASED [None]
  - HEPATOMEGALY [None]
  - MUSCULAR WEAKNESS [None]
  - PULMONARY OEDEMA [None]
